FAERS Safety Report 20214171 (Version 2)
Quarter: 2022Q1

REPORT INFORMATION
  Report Type: Spontaneous
  Country: US (occurrence: US)
  Receive Date: 20211221
  Receipt Date: 20220113
  Transmission Date: 20220423
  Serious: Yes (Hospitalization, Other)
  Sender: FDA-Public Use
  Company Number: US-BAYER-2021A268141

PATIENT
  Age: 28 Year
  Sex: Male

DRUGS (2)
  1. JIVI [Suspect]
     Active Substance: DAMOCTOCOG ALFA PEGOL
     Dosage: 3756 IU, Q2WK
  2. JIVI [Suspect]
     Active Substance: DAMOCTOCOG ALFA PEGOL
     Dosage: 1 DF, FOR THE COLLARBONE AND RIBS BROKEN
     Dates: start: 20211210

REACTIONS (2)
  - Road traffic accident [None]
  - Traumatic fracture [None]

NARRATIVE: CASE EVENT DATE: 20211210
